FAERS Safety Report 26053122 (Version 1)
Quarter: 2025Q4

REPORT INFORMATION
  Report Type: Report from Study
  Country: US (occurrence: US)
  Receive Date: 20251117
  Receipt Date: 20251117
  Transmission Date: 20260118
  Serious: Yes (Hospitalization, Other)
  Sender: GILEAD
  Company Number: US-GILEAD-2025-0736422

PATIENT
  Age: 1 Year
  Sex: Male

DRUGS (2)
  1. AMBRISENTAN [Suspect]
     Active Substance: AMBRISENTAN
     Indication: Pulmonary arterial hypertension
     Dosage: DISSOLVE 1 FULL TAB IN 5ML OF WATER, ADMINISTER 2.5ML OF PREPARED SOLUTION BY MOUTH DAILY DISCARD RE
     Route: 048
     Dates: start: 202508
  2. TADLIQ [Suspect]
     Active Substance: TADALAFIL
     Indication: Pulmonary arterial hypertension
     Dosage: 2.5 ML BY MOUTH 1 TIME A DAY
     Route: 048
     Dates: start: 202510

REACTIONS (2)
  - Pericardial effusion [Not Recovered/Not Resolved]
  - Product use issue [Recovered/Resolved]
